FAERS Safety Report 7236801-4 (Version None)
Quarter: 2011Q1

REPORT INFORMATION
  Report Type: 
  Country: None (occurrence: None)
  Receive Date: 20110120
  Receipt Date: 20110117
  Transmission Date: 20110831
  Serious: Yes (Hospitalization, Other)
  Sender: FDA-Public Use
  Company Number: JP-ABBOTT-10P-087-0694179-00

PATIENT
  Sex: Female
  Weight: 53 kg

DRUGS (9)
  1. KLARICID TABLETS [Suspect]
     Indication: PYREXIA
  2. CHINESE HERBAL MEDICINE [Suspect]
     Indication: PRODUCT USED FOR UNKNOWN INDICATION
     Dosage: 7.5G, 2.5G 3 IN 1 DAY
     Route: 048
     Dates: start: 20091127, end: 20091128
  3. CHINESE HERBAL MEDICINE [Suspect]
  4. OSELTAMIVIR PHOSPHATE [Suspect]
     Indication: VIRAL INFECTION
  5. KLARICID TABLETS [Suspect]
     Indication: PHARYNGEAL ERYTHEMA
  6. ACETAMINOPHEN [Suspect]
     Indication: PHARYNGEAL ERYTHEMA
  7. KLARICID TABLETS [Suspect]
     Indication: ANTIBIOTIC PROPHYLAXIS
     Dosage: 400MG DAILY, 200MG 2 IN 1 DAY
     Route: 048
     Dates: start: 20091126, end: 20091128
  8. OSELTAMIVIR PHOSPHATE [Suspect]
     Indication: PROPHYLAXIS
     Dosage: 150MG DAILY
     Route: 048
     Dates: start: 20091127, end: 20091128
  9. ACETAMINOPHEN [Suspect]
     Indication: PYREXIA
     Dosage: 400MG DAILY, 200MG 2 IN 1 DAY
     Route: 048
     Dates: start: 20091126, end: 20091128

REACTIONS (5)
  - LIVER DISORDER [None]
  - PYREXIA [None]
  - PHARYNGEAL ERYTHEMA [None]
  - RASH [None]
  - ERYTHEMA MULTIFORME [None]
